FAERS Safety Report 7085576-0 (Version None)
Quarter: 2010Q4

REPORT INFORMATION
  Report Type: 
  Country: None (occurrence: None)
  Receive Date: 20101105
  Receipt Date: 20101028
  Transmission Date: 20110411
  Serious: Yes (Congenital Anomaly, Other)
  Sender: FDA-Public Use
  Company Number: FR-ABBOTT-10P-056-0682153-00

PATIENT
  Sex: Male

DRUGS (3)
  1. DEPAKENE [Suspect]
     Indication: DRUG EXPOSURE DURING PREGNANCY
     Route: 064
  2. MICROVAL [Suspect]
     Indication: DRUG EXPOSURE DURING PREGNANCY
     Route: 064
  3. FOLIC ACID [Suspect]
     Indication: DRUG EXPOSURE DURING PREGNANCY
     Route: 064

REACTIONS (4)
  - CONGENITAL INTESTINAL MALFORMATION [None]
  - DRUG EXPOSURE DURING PREGNANCY [None]
  - FOETAL HEART RATE ABNORMAL [None]
  - PREMATURE BABY [None]
